FAERS Safety Report 20628974 (Version 1)
Quarter: 2022Q1

REPORT INFORMATION
  Report Type: Spontaneous
  Country: US (occurrence: None)
  Receive Date: 20220322
  Receipt Date: 20220322
  Transmission Date: 20220423
  Serious: Yes (unspecified)
  Sender: FDA-Public Use
  Company Number: None

PATIENT
  Age: 39 Year
  Sex: Female
  Weight: 122.47 kg

DRUGS (34)
  1. ELURYNG [Suspect]
     Active Substance: ETHINYL ESTRADIOL\ETONOGESTREL
  2. BUPROPION [Concomitant]
     Active Substance: BUPROPION
  3. DULOXETINE [Concomitant]
     Active Substance: DULOXETINE
  4. LORAZEPAM [Concomitant]
     Active Substance: LORAZEPAM
  5. PRAZOSIN [Concomitant]
     Active Substance: PRAZOSIN
  6. ZOLPIDEM [Concomitant]
     Active Substance: ZOLPIDEM TARTRATE
  7. LEVOTHYROXINE [Concomitant]
     Active Substance: LEVOTHYROXINE
  8. Extended release Morphine [Concomitant]
  9. OXYCODONE [Concomitant]
     Active Substance: OXYCODONE
  10. GABAPENTIN [Concomitant]
     Active Substance: GABAPENTIN
  11. Omega 3 ethyl ester [Concomitant]
  12. NABUMETONE [Concomitant]
     Active Substance: NABUMETONE
  13. TIZANIDINE [Concomitant]
     Active Substance: TIZANIDINE
  14. SILDENAFIL [Concomitant]
     Active Substance: SILDENAFIL
  15. FAMOTIDINE [Concomitant]
     Active Substance: FAMOTIDINE
  16. ATENOLOL [Concomitant]
     Active Substance: ATENOLOL
  17. Flucocinonide [Concomitant]
  18. Ketoconozole shampp [Concomitant]
  19. Ketoconozole cream [Concomitant]
  20. Triamcinolone ointment [Concomitant]
  21. ONDANSETRON [Concomitant]
     Active Substance: ONDANSETRON
  22. OXYBUTYNIN [Concomitant]
     Active Substance: OXYBUTYNIN
  23. VITAMIN D [Concomitant]
     Active Substance: VITAMIN D NOS
  24. VITAMIN B [Concomitant]
     Active Substance: VITAMIN B
  25. CALCIUM [Concomitant]
     Active Substance: CALCIUM
  26. MULTI-VITAMIN [Concomitant]
     Active Substance: .ALPHA.-TOCOPHEROL ACETATE, DL-\ASCORBIC ACID\CYANOCOBALAMIN\FLUORIDE ION\FOLIC ACID\NIACIN\PYRIDOXI
  27. SACCHAROMYCES CEREVISIAE [Concomitant]
     Active Substance: SACCHAROMYCES CEREVISIAE
  28. PROBIOTICS NOS [Concomitant]
     Active Substance: PROBIOTICS NOS
  29. BIOFREEZE [Concomitant]
     Active Substance: MENTHOL
  30. Super Aloe [Concomitant]
  31. TYLENOL EXTRA STRENGTH [Concomitant]
     Active Substance: ACETAMINOPHEN
  32. BENADRYL [Concomitant]
     Active Substance: DIPHENHYDRAMINE HYDROCHLORIDE
  33. HYDROCORTISONE [Concomitant]
     Active Substance: HYDROCORTISONE
  34. GasX [Concomitant]

REACTIONS (3)
  - Complication associated with device [None]
  - Vulvovaginal pain [None]
  - Device breakage [None]

NARRATIVE: CASE EVENT DATE: 20220320
